FAERS Safety Report 5639320-1 (Version None)
Quarter: 2008Q1

REPORT INFORMATION
  Report Type: 
  Country: None (occurrence: None)
  Receive Date: 20080226
  Receipt Date: 20080214
  Transmission Date: 20080703
  Serious: Yes (Other)
  Sender: FDA-Public Use
  Company Number: FR-PFIZER INC-2007097073

PATIENT
  Sex: Female
  Weight: 60 kg

DRUGS (1)
  1. DOSTINEX [Suspect]
     Indication: HYPERPROLACTINAEMIA
     Route: 048
     Dates: start: 20070123, end: 20071108

REACTIONS (4)
  - CYTOLYTIC HEPATITIS [None]
  - GALACTORRHOEA [None]
  - GASTRITIS [None]
  - HEPATITIS [None]
